FAERS Safety Report 4613653-X (Version None)
Quarter: 2005Q1

REPORT INFORMATION
  Report Type: 
  Country: None (occurrence: None)
  Receive Date: 20050321
  Receipt Date: 20050308
  Transmission Date: 20050727
  Serious: Yes (Hospitalization)
  Sender: FDA-Public Use
  Company Number: US-AMGEN-US120425

PATIENT
  Sex: Male

DRUGS (1)
  1. PROCRIT [Suspect]
     Indication: RENAL FAILURE CHRONIC
     Dates: start: 20040407

REACTIONS (5)
  - BLADDER OBSTRUCTION [None]
  - HYDRONEPHROSIS [None]
  - INFLUENZA LIKE ILLNESS [None]
  - PROSTATIC SPECIFIC ANTIGEN INCREASED [None]
  - WHEEZING [None]
